FAERS Safety Report 13104283 (Version 1)
Quarter: 2017Q1

REPORT INFORMATION
  Report Type: Spontaneous
  Country: US (occurrence: US)
  Receive Date: 20170110
  Receipt Date: 20170110
  Transmission Date: 20170428
  Serious: Yes (Death)
  Sender: FDA-Public Use
  Company Number: None

PATIENT
  Age: 93 Year
  Sex: Male

DRUGS (2)
  1. XGEVA [Suspect]
     Active Substance: DENOSUMAB
     Indication: NEOPLASM MALIGNANT
     Dosage: 1 MONTHLY
     Dates: start: 20161011, end: 20170107
  2. PREDNISONE 5MG GENERIC [Suspect]
     Active Substance: PREDNISONE
     Indication: NEOPLASM MALIGNANT
     Route: 048
     Dates: start: 20161010, end: 20170107

REACTIONS (1)
  - Death [None]

NARRATIVE: CASE EVENT DATE: 20170107
